FAERS Safety Report 6250929-7 (Version None)
Quarter: 2009Q2

REPORT INFORMATION
  Report Type: 
  Country: None (occurrence: None)
  Receive Date: 20090630
  Receipt Date: 20090129
  Transmission Date: 20091009
  Serious: No
  Sender: FDA-Public Use
  Company Number: US-ABBOTT-09P-163-0500910-00

PATIENT
  Sex: Female
  Weight: 54.48 kg

DRUGS (14)
  1. ZEMPLAR [Suspect]
     Indication: HYPERPARATHYROIDISM
     Dosage: M-W-F, 3 IN ONE WEEK
     Route: 048
     Dates: start: 20080601
  2. TYLENOL PM [Concomitant]
     Indication: INSOMNIA
     Route: 048
     Dates: end: 20090127
  3. VYTORIN [Concomitant]
     Indication: BLOOD CHOLESTEROL
     Dosage: 10/40MG DAILY
     Route: 048
     Dates: start: 20050101
  4. ATACAND [Concomitant]
     Indication: BLOOD PRESSURE
     Route: 048
  5. PLAVIX [Concomitant]
     Indication: CORONARY ARTERY DISEASE
     Route: 048
  6. ASPIRIN [Concomitant]
     Indication: CORONARY ARTERY DISEASE
     Dosage: TAKES WITH PLAVIX
     Route: 048
  7. LASIX [Concomitant]
     Indication: FLUID RETENTION
     Route: 048
  8. LASIX [Concomitant]
     Indication: PROPHYLAXIS
  9. BYSTOLIC [Concomitant]
     Indication: CARDIAC DISORDER
     Route: 048
  10. VITAMIN D [Concomitant]
     Indication: VITAMIN SUPPLEMENTATION
     Route: 048
  11. NEOCAPS [Concomitant]
     Indication: MEDICAL DIET
     Route: 048
  12. NITROGLYCERIN [Concomitant]
     Indication: ANGINA PECTORIS
     Route: 060
  13. PRILOSEC OTC [Concomitant]
     Indication: GASTROOESOPHAGEAL REFLUX DISEASE
  14. PRILOSEC OTC [Concomitant]
     Indication: DIVERTICULITIS

REACTIONS (2)
  - HALLUCINATION, VISUAL [None]
  - INITIAL INSOMNIA [None]
